FAERS Safety Report 4846374-9 (Version None)
Quarter: 2005Q4

REPORT INFORMATION
  Report Type: 
  Country: None (occurrence: None)
  Receive Date: 20051115
  Receipt Date: 20051005
  Transmission Date: 20060501
  Serious: No
  Sender: FDA-Public Use
  Company Number: 420260

PATIENT
  Age: 55 Year
  Sex: Male
  Weight: 79.4 kg

DRUGS (9)
  1. PEGASYS [Suspect]
     Indication: HEPATITIS C
     Dosage: 180 MCG 1 PER WEEK SUBCUTANEOUS
     Route: 058
     Dates: start: 20050215
  2. COPEGUS [Suspect]
     Indication: HEPATITIS C
     Dosage: 1000 MG DAILY ORAL
     Route: 048
     Dates: start: 20050215
  3. INTERFERON NOS (INTERFERON NOS) [Suspect]
     Indication: HEPATITIS C
     Dates: start: 20031015, end: 20041015
  4. RIBAVIRIN [Suspect]
     Indication: HEPATITIS C
     Dates: start: 20031015, end: 20041015
  5. PROPRANOLOL [Concomitant]
  6. PREVACID [Concomitant]
  7. URSO (URSODIOL) [Concomitant]
  8. INSULIN [Concomitant]
  9. LANTUS [Concomitant]

REACTIONS (1)
  - PLATELET COUNT DECREASED [None]
